FAERS Safety Report 6645014-6 (Version None)
Quarter: 2010Q1

REPORT INFORMATION
  Report Type: 
  Country: None (occurrence: None)
  Receive Date: 20100322
  Receipt Date: 20100308
  Transmission Date: 20100710
  Serious: Yes (Hospitalization)
  Sender: FDA-Public Use
  Company Number: US-MYLANLABS-2010S1003773

PATIENT
  Age: 38 Year
  Sex: Male

DRUGS (8)
  1. CLOZAPINE [Suspect]
     Indication: SCHIZOAFFECTIVE DISORDER
  2. VALPROIC ACID [Suspect]
     Indication: GRAND MAL CONVULSION
  3. OXCARBAZEPINE [Concomitant]
     Indication: SCHIZOAFFECTIVE DISORDER
  4. RISPERIDONE [Concomitant]
     Indication: SCHIZOAFFECTIVE DISORDER
  5. OLANZAPINE [Concomitant]
     Indication: SCHIZOAFFECTIVE DISORDER
  6. LITHIUM [Concomitant]
     Indication: SCHIZOAFFECTIVE DISORDER
  7. CITALOPRAM HYDROBROMIDE [Concomitant]
     Indication: SCHIZOAFFECTIVE DISORDER
  8. GABAPENTIN [Concomitant]
     Indication: SCHIZOAFFECTIVE DISORDER

REACTIONS (3)
  - CONVULSION [None]
  - HYPERAMMONAEMIA [None]
  - MYOCLONUS [None]
